FAERS Safety Report 15192247 (Version 4)
Quarter: 2025Q2

REPORT INFORMATION
  Report Type: Report from Study
  Country: US (occurrence: US)
  Receive Date: 20180724
  Receipt Date: 20250411
  Transmission Date: 20250716
  Serious: Yes (Hospitalization)
  Sender: TAKEDA
  Company Number: US-SHIRE-US201818278

PATIENT
  Age: 27 Year
  Sex: Female
  Weight: 192 kg

DRUGS (21)
  1. LANADELUMAB [Suspect]
     Active Substance: LANADELUMAB
     Indication: Immune system disorder
     Dosage: 300 MILLIGRAM, Q2WEEKS
  2. LANADELUMAB [Suspect]
     Active Substance: LANADELUMAB
  3. LANADELUMAB [Suspect]
     Active Substance: LANADELUMAB
  4. FIRAZYR [Suspect]
     Active Substance: ICATIBANT ACETATE
     Indication: Product used for unknown indication
  5. FIRAZYR [Suspect]
     Active Substance: ICATIBANT ACETATE
  6. NEURONTIN [Concomitant]
     Active Substance: GABAPENTIN
  7. ALBUTEROL SULFATE [Concomitant]
     Active Substance: ALBUTEROL SULFATE
  8. MAGNESIUM OXIDE [Concomitant]
     Active Substance: MAGNESIUM OXIDE
  9. ICATIBANT [Concomitant]
     Active Substance: ICATIBANT ACETATE
  10. XANAX [Concomitant]
     Active Substance: ALPRAZOLAM
  11. METOPROLOL SUCCINATE [Concomitant]
     Active Substance: METOPROLOL SUCCINATE
  12. ZYRTEC [Concomitant]
     Active Substance: CETIRIZINE HYDROCHLORIDE
  13. VENTOLIN HFA [Concomitant]
     Active Substance: ALBUTEROL SULFATE
  14. BENADRYL ALLERGY [Concomitant]
     Active Substance: DIPHENHYDRAMINE HYDROCHLORIDE
  15. CYCLOBENZAPRINE HYDROCHLORIDE [Concomitant]
     Active Substance: CYCLOBENZAPRINE HYDROCHLORIDE
  16. PLAVIX [Concomitant]
     Active Substance: CLOPIDOGREL BISULFATE
  17. LEXAPRO [Concomitant]
     Active Substance: ESCITALOPRAM OXALATE
  18. SODIUM CHLORIDE [Concomitant]
     Active Substance: SODIUM CHLORIDE
  19. DILAUDID [Concomitant]
     Active Substance: HYDROMORPHONE HYDROCHLORIDE
  20. LUPRON DEPOT [Concomitant]
     Active Substance: LEUPROLIDE ACETATE
  21. SAJAZIR [Concomitant]
     Active Substance: ICATIBANT ACETATE

REACTIONS (4)
  - Complication of pregnancy [Unknown]
  - Hereditary angioedema [Not Recovered/Not Resolved]
  - Pregnancy [Unknown]
  - Migraine [Unknown]

NARRATIVE: CASE EVENT DATE: 20180606
